FAERS Safety Report 22077883 (Version 2)
Quarter: 2024Q2

REPORT INFORMATION
  Report Type: Report from Study
  Country: AU (occurrence: AU)
  Receive Date: 20230309
  Receipt Date: 20240405
  Transmission Date: 20240716
  Serious: Yes (Hospitalization, Congenital Anomaly, Other)
  Sender: FDA-Public Use
  Company Number: AU-JNJFOC-20230308321

PATIENT

DRUGS (1)
  1. STELARA [Suspect]
     Active Substance: USTEKINUMAB
     Indication: Inflammatory bowel disease
     Route: 064

REACTIONS (11)
  - Lower respiratory tract infection [Unknown]
  - Heart disease congenital [Unknown]
  - Ventricular septal defect [Unknown]
  - Renal impairment [Unknown]
  - Premature baby [Unknown]
  - Infection [Unknown]
  - Underweight [Unknown]
  - Foetal exposure during pregnancy [Recovered/Resolved]
  - Gastroenteritis [Unknown]
  - Upper respiratory tract infection [Unknown]
  - Eczema [Unknown]
